FAERS Safety Report 8100247-7 (Version None)
Quarter: 2012Q1

REPORT INFORMATION
  Report Type: 
  Country: None (occurrence: None)
  Receive Date: 20120131
  Receipt Date: 20120124
  Transmission Date: 20120608
  Serious: No
  Sender: FDA-Public Use
  Company Number: US-B.I. PHARMACEUTICALS,INC./RIDGEFIELD-2012-BP-01470BP

PATIENT
  Sex: Female

DRUGS (3)
  1. MULTAQ [Concomitant]
     Indication: ATRIAL FIBRILLATION
     Dates: start: 20110101, end: 20110101
  2. VALIUM [Concomitant]
     Indication: ANXIETY
     Route: 048
  3. PRADAXA [Suspect]
     Indication: ATRIAL FIBRILLATION
     Dosage: 300 MG
     Route: 048
     Dates: start: 20110101, end: 20110101

REACTIONS (2)
  - SOMNOLENCE [None]
  - HYPOTENSION [None]
